FAERS Safety Report 23001883 (Version 2)
Quarter: 2023Q4

REPORT INFORMATION
  Report Type: Spontaneous
  Country: CN (occurrence: CN)
  Receive Date: 20230928
  Receipt Date: 20231009
  Transmission Date: 20240110
  Serious: Yes (Life-Threatening)
  Sender: FDA-Public Use
  Company Number: CN-002147023-NVSC2023CN209864

PATIENT
  Age: 54 Year
  Sex: Female
  Weight: 71 kg

DRUGS (2)
  1. PAZOPANIB [Suspect]
     Active Substance: PAZOPANIB
     Indication: Targeted cancer therapy
     Dosage: 800 MG, QD
     Route: 048
     Dates: start: 20230714, end: 20230921
  2. PAZOPANIB [Suspect]
     Active Substance: PAZOPANIB
     Indication: Renal cancer

REACTIONS (4)
  - White blood cell count decreased [Recovered/Resolved]
  - Myelosuppression [Recovered/Resolved]
  - Neutrophil count decreased [Recovered/Resolved]
  - Platelet count decreased [Recovered/Resolved]

NARRATIVE: CASE EVENT DATE: 20230920
